FAERS Safety Report 10656787 (Version 10)
Quarter: 2016Q2

REPORT INFORMATION
  Report Type: Spontaneous
  Country: CN (occurrence: CN)
  Receive Date: 20141217
  Receipt Date: 20160617
  Transmission Date: 20160815
  Serious: Yes (Hospitalization, Other)
  Sender: FDA-Public Use
  Company Number: CN-009507513-1412CHN007614

PATIENT
  Age: 42 Year
  Sex: Female
  Weight: 59 kg

DRUGS (25)
  1. TORSEMIDE. [Concomitant]
     Active Substance: TORSEMIDE
     Indication: URINARY RETENTION
     Dosage: 10 MG, ONCE
     Route: 042
     Dates: start: 20141204, end: 20141204
  2. GLYCYRRHIZIN [Concomitant]
     Active Substance: GLYCYRRHIZIN
     Indication: PROPHYLAXIS
     Dosage: 80 ML/CC, QD
     Route: 041
     Dates: start: 20141211, end: 20141215
  3. LANSOPRAZOLE. [Concomitant]
     Active Substance: LANSOPRAZOLE
     Dosage: 30 MG, QD
     Route: 041
     Dates: start: 20141211, end: 20141215
  4. DEXRAZOXANE. [Concomitant]
     Active Substance: DEXRAZOXANE
     Indication: CARDIOVASCULAR EVENT PROPHYLAXIS
     Dosage: 1.2 G, ONCE
     Route: 041
     Dates: start: 20141204, end: 20141204
  5. GRANULOCYTE COLONY STIMULATING FACTOR (UNSPECIFIED) [Concomitant]
     Active Substance: FILGRASTIM
     Indication: IMMUNE ENHANCEMENT THERAPY
     Dosage: 1 ML/CC, QD
     Route: 041
     Dates: start: 20141208
  6. ONDANSETRON HYDROCHLORIDE. [Concomitant]
     Active Substance: ONDANSETRON HYDROCHLORIDE
     Indication: PROPHYLAXIS OF NAUSEA AND VOMITING
     Dosage: TOTAL DAILY DOSE: 5 MG, (FREQUENCY: BID)
     Route: 042
     Dates: start: 20141204, end: 20141204
  7. POLYENEPHOSPHATIDYL CHOLINE [Concomitant]
     Indication: PROPHYLAXIS
     Dosage: 15 ML/CC, QD
     Route: 042
     Dates: start: 20141211, end: 20141215
  8. CYCLOPHOSPHAMIDE. [Concomitant]
     Active Substance: CYCLOPHOSPHAMIDE
     Indication: CHEMOTHERAPY
     Dosage: 0.75 G, TREATMENT CYCLE 1/UNK, TREATMENT REGIMEN TEC
     Route: 041
     Dates: start: 20141204, end: 20141204
  9. DEXAMETHASONE. [Concomitant]
     Active Substance: DEXAMETHASONE
     Indication: PROPHYLAXIS OF NAUSEA AND VOMITING
     Dosage: TOTAL DAILY DOSE 20 TABLET, FREQUENCY BID
     Route: 048
     Dates: start: 20141204, end: 20141205
  10. LIDOCAINE HYDROCHLORIDE. [Concomitant]
     Active Substance: LIDOCAINE HYDROCHLORIDE
     Indication: ADJUVANT THERAPY
     Dosage: STRENGTH 5 ML, DOSE 100 MG, ONCE
     Route: 058
     Dates: start: 20141203, end: 20141203
  11. SHEN QI FU ZHENG ZHU SHE YE [Concomitant]
     Indication: IMMUNE ENHANCEMENT THERAPY
     Dosage: 250 MG, QD
     Route: 041
     Dates: start: 20141204, end: 20141208
  12. DOCETAXEL. [Concomitant]
     Active Substance: DOCETAXEL
     Indication: CHEMOTHERAPY
     Dosage: 120 MG, TREATMENT CYCLE 1/UNK, TREATMENT REGIMEN TEC
     Route: 041
     Dates: start: 20141204, end: 20141204
  13. EMEND [Suspect]
     Active Substance: APREPITANT
     Indication: PROPHYLAXIS OF NAUSEA AND VOMITING
     Dosage: 125 MG (DAY 1) ONCE
     Route: 048
     Dates: start: 20141204, end: 20141204
  14. DEXAMETHASONE. [Concomitant]
     Active Substance: DEXAMETHASONE
     Indication: PROPHYLAXIS OF NAUSEA AND VOMITING
     Dosage: TOTAL DAILY DOSE: 20 TABLETS (FREQUENCY: BID)
     Route: 048
     Dates: start: 20141203, end: 20141203
  15. THYMALFASIN [Concomitant]
     Active Substance: THYMALFASIN
     Indication: ADJUVANT THERAPY
     Dosage: TOTAL DAILY DOSE: 1.6 MG, FREQUENCY: ST
     Route: 058
     Dates: start: 20141211, end: 20141211
  16. EPIRUBICIN HYDROCHLORIDE. [Concomitant]
     Active Substance: EPIRUBICIN HYDROCHLORIDE
     Indication: CHEMOTHERAPY
     Dosage: 120 MG, TREATMENT CYCLE 1/UNK, TREATMENT REGIMEN TEC
     Route: 041
     Dates: start: 20141204, end: 20141204
  17. ASTRAGALUS [Concomitant]
     Indication: APPETITE DISORDER
     Dosage: 0.25 G, QD
     Route: 041
     Dates: start: 20141211, end: 20141215
  18. LANSOPRAZOLE. [Concomitant]
     Active Substance: LANSOPRAZOLE
     Indication: PROPHYLAXIS
     Dosage: TOTAL DAILY DOSE: 30 MG (FREQUENCY: BID)
     Route: 041
     Dates: start: 20141204, end: 20141208
  19. DEXAMETHASONE SODIUM PHOSPHATE. [Concomitant]
     Active Substance: DEXAMETHASONE SODIUM PHOSPHATE
     Indication: PROPHYLAXIS OF NAUSEA AND VOMITING
     Dosage: 15 MG, ONCE
     Route: 042
     Dates: start: 20141204, end: 20141204
  20. QI JIAO SHENG BAI JIAO NANG [Concomitant]
     Indication: IMMUNE ENHANCEMENT THERAPY
     Dosage: TOTAL DAILY DOSE: 12 CAP; (FREQUENCY: TID)
     Route: 048
     Dates: start: 20141208
  21. SODIUM BICARBONATE. [Concomitant]
     Active Substance: SODIUM BICARBONATE
     Indication: PROPHYLAXIS
     Dosage: UNK, TID, SOAK
     Route: 050
     Dates: start: 20141211
  22. EMEND [Suspect]
     Active Substance: APREPITANT
     Dosage: 80 MG (DAY 2) (DAY 3), QD
     Route: 048
     Dates: start: 20141205, end: 20141206
  23. POTASSIUM CHLORIDE. [Concomitant]
     Active Substance: POTASSIUM CHLORIDE
     Indication: ELECTROLYTE SUBSTITUTION THERAPY
     Dosage: 1 G, QD
     Route: 041
     Dates: start: 20141204, end: 20141208
  24. THYMALFASIN [Concomitant]
     Active Substance: THYMALFASIN
     Indication: IMMUNE ENHANCEMENT THERAPY
     Dosage: TOTAL DAILY
     Route: 058
     Dates: start: 20141208, end: 20141208
  25. CEFUROXIME SODIUM. [Concomitant]
     Active Substance: CEFUROXIME SODIUM
     Indication: ADJUVANT THERAPY
     Dosage: TOTAL DAILY DOSE: 1.5 G (FREQUENCY: BID)
     Route: 042
     Dates: start: 20141211, end: 20141212

REACTIONS (2)
  - Bone marrow failure [Recovered/Resolved]
  - Pyrexia [Recovered/Resolved]

NARRATIVE: CASE EVENT DATE: 20141211
